FAERS Safety Report 11390433 (Version 2)
Quarter: 2015Q3

REPORT INFORMATION
  Report Type: Spontaneous
  Country: US (occurrence: None)
  Receive Date: 20150813
  Receipt Date: 20150921
  Transmission Date: 20151125
  Serious: Yes (Hospitalization, Other)
  Sender: FDA-Public Use
  Company Number: ADR-2015-01525

PATIENT
  Age: 48 Year
  Sex: Male

DRUGS (1)
  1. BACLOFEN (ORAL) [Suspect]
     Active Substance: BACLOFEN
     Indication: ALCOHOL WITHDRAWAL SYNDROME
     Dosage: 10MG 3X/DAY

REACTIONS (8)
  - Mental status changes [None]
  - Toxicity to various agents [None]
  - Apnoea [None]
  - Paralysis [None]
  - Coma [None]
  - Unresponsive to stimuli [None]
  - Toxic encephalopathy [None]
  - Neurotoxicity [None]
